FAERS Safety Report 4767022-2 (Version None)
Quarter: 2005Q3

REPORT INFORMATION
  Report Type: 
  Country: None (occurrence: None)
  Receive Date: 20050901
  Receipt Date: 20050818
  Transmission Date: 20060218
  Serious: Yes (Other)
  Sender: FDA-Public Use
  Company Number: SAGL-ZLB/05/74

PATIENT
  Sex: Male

DRUGS (1)
  1. SANDOGLOBULIN [Suspect]

REACTIONS (1)
  - HEPATITIS C POSITIVE [None]
